FAERS Safety Report 8437765 (Version 4)
Quarter: 2012Q4

REPORT INFORMATION
  Report Type: Report from Study
  Country: CZ (occurrence: CZ)
  Receive Date: 20120302
  Receipt Date: 20120919
  Transmission Date: 20130627
  Serious: Yes (Other)
  Sender: FDA-Public Use
  Company Number: CZ-ACTELION-A-CH2012-60469

PATIENT
  Age: 29 Year
  Sex: Female
  Weight: 51 kg

DRUGS (8)
  1. ZAVESCA [Suspect]
     Indication: NIEMANN-PICK DISEASE
     Dosage: 200 mg, tid
     Route: 048
     Dates: start: 20110915, end: 20120130
  2. ZAVESCA [Suspect]
     Dosage: 100 mg, tid
     Route: 048
     Dates: start: 20120131, end: 20120222
  3. ZAVESCA [Suspect]
     Dosage: 100 mg, tid
     Route: 048
     Dates: start: 20120410, end: 20120501
  4. ZAVESCA [Suspect]
     Dosage: 200 mg, tid
     Route: 048
     Dates: end: 20120810
  5. ASENTRA [Concomitant]
     Indication: DEPRESSION
     Dosage: UNK
     Dates: start: 200709
  6. MILGAMMA [Concomitant]
     Indication: VITAMIN SUPPLEMENTATION
     Dosage: UNK
     Dates: start: 200709
  7. THIAMIN [Concomitant]
  8. CYANOCOBALAMIN [Concomitant]
     Dosage: UNK
     Dates: start: 200709

REACTIONS (18)
  - Mental status changes [Not Recovered/Not Resolved]
  - Confusional state [Not Recovered/Not Resolved]
  - Memory impairment [Not Recovered/Not Resolved]
  - Disorientation [Not Recovered/Not Resolved]
  - Condition aggravated [Not Recovered/Not Resolved]
  - Apathy [Not Recovered/Not Resolved]
  - Disturbance in attention [Not Recovered/Not Resolved]
  - Cognitive disorder [Not Recovered/Not Resolved]
  - Motor dysfunction [Not Recovered/Not Resolved]
  - Speech disorder [Not Recovered/Not Resolved]
  - Dysphagia [Not Recovered/Not Resolved]
  - Lethargy [Not Recovered/Not Resolved]
  - Walking disability [Not Recovered/Not Resolved]
  - Fall [Not Recovered/Not Resolved]
  - Cough [Not Recovered/Not Resolved]
  - Salivary hypersecretion [Not Recovered/Not Resolved]
  - Niemann-Pick disease [Unknown]
  - Disease progression [Unknown]
